FAERS Safety Report 17913439 (Version 1)
Quarter: 2020Q2

REPORT INFORMATION
  Report Type: Spontaneous
  Country: US (occurrence: US)
  Receive Date: 20200618
  Receipt Date: 20200618
  Transmission Date: 20200714
  Serious: No
  Sender: FDA-Public Use
  Company Number: US-THERAPEUTICSMD-2020TMD02099

PATIENT
  Sex: Female
  Weight: 62.13 kg

DRUGS (2)
  1. IMVEXXY [Suspect]
     Active Substance: ESTRADIOL
     Indication: VAGINAL DISORDER
     Dosage: 10 ?G, 2X/WEEK, IN BED
     Route: 067
     Dates: start: 202002
  2. METFORMIN [Concomitant]
     Active Substance: METFORMIN HYDROCHLORIDE

REACTIONS (5)
  - Product dose omission [Recovered/Resolved]
  - Product residue present [Not Recovered/Not Resolved]
  - Off label use [Not Recovered/Not Resolved]
  - Product use complaint [Not Recovered/Not Resolved]
  - Vaginal discharge [Not Recovered/Not Resolved]

NARRATIVE: CASE EVENT DATE: 2020
